FAERS Safety Report 6543549-8 (Version None)
Quarter: 2010Q1

REPORT INFORMATION
  Report Type: 
  Country: None (occurrence: None)
  Receive Date: 20100120
  Receipt Date: 20100111
  Transmission Date: 20100710
  Serious: Yes (Hospitalization, Other)
  Sender: FDA-Public Use
  Company Number: BR-ABBOTT-10P-020-0618543-00

PATIENT
  Age: 6 Year
  Sex: Male

DRUGS (3)
  1. VALPAKINE [Suspect]
     Indication: CONVULSION
     Route: 048
     Dates: start: 20080101, end: 20100101
  2. URBANIL [Suspect]
     Indication: CONVULSION
     Route: 048
     Dates: start: 20070101
  3. LAMOTRIGINE [Concomitant]
     Indication: DRUG USE FOR UNKNOWN INDICATION
     Dates: start: 20080101

REACTIONS (3)
  - CONVULSION [None]
  - DRUG WITHDRAWAL SYNDROME [None]
  - PETIT MAL EPILEPSY [None]
